FAERS Safety Report 9913421 (Version 4)
Quarter: 2020Q3

REPORT INFORMATION
  Report Type: Report from Study
  Country: JP (occurrence: JP)
  Receive Date: 20140220
  Receipt Date: 20140425
  Transmission Date: 20201104
  Serious: Yes (Hospitalization, Other)
  Sender: FDA-Public Use
  Company Number: JP-ASTELLAS-2014US001760

PATIENT
  Age: 78 Year
  Sex: Female

DRUGS (21)
  1. ERLOTINIB [Suspect]
     Active Substance: ERLOTINIB
     Indication: NON-SMALL CELL LUNG CANCER
     Route: 048
     Dates: start: 20131008, end: 20131021
  2. ERLOTINIB [Suspect]
     Active Substance: ERLOTINIB
     Route: 048
     Dates: start: 20131022, end: 20131227
  3. RINDERON VG [Concomitant]
     Active Substance: BETAMETHASONE VALERATE\GENTAMICIN SULFATE
     Indication: DRY SKIN
     Dosage: PROPER QUANTITY, BID
     Route: 061
     Dates: start: 20131016, end: 20140107
  4. DERMOVATE [Concomitant]
     Active Substance: CLOBETASOL
  5. MINOMYCIN [Concomitant]
     Active Substance: MINOCYCLINE HYDROCHLORIDE
     Route: 048
     Dates: start: 20140112, end: 20140119
  6. DERMOVATE [Concomitant]
     Active Substance: CLOBETASOL
     Indication: DERMATITIS ACNEIFORM
     Dosage: PROPER QUANTITY, BID
     Route: 061
     Dates: start: 20131227
  7. ONARTUZUMAB. [Suspect]
     Active Substance: ONARTUZUMAB
     Indication: NON-SMALL CELL LUNG CANCER
     Route: 042
     Dates: start: 20131008, end: 20131217
  8. BETAMETHASONE BUTYRATE PROPIONATE [Concomitant]
     Active Substance: BETAMETHASONE BUTYRATE PROPIONATE
     Indication: DRY SKIN
     Dosage: PROPER QUANTITY, BID
     Route: 061
     Dates: start: 20131227
  9. AMLODIPINE BESILATE W/TELMISARTAN [Concomitant]
     Indication: HYPERTENSION
     Route: 048
  10. GASTER [Concomitant]
     Active Substance: FAMOTIDINE
     Indication: GASTRITIS PROPHYLAXIS
     Route: 048
     Dates: start: 2010, end: 20140107
  11. CADUET [Concomitant]
     Active Substance: AMLODIPINE BESYLATE\ATORVASTATIN CALCIUM
     Indication: HYPERTENSION
     Route: 048
     Dates: start: 2009, end: 20140107
  12. EPINASTINE HYDROCHLORIDE. [Concomitant]
     Active Substance: EPINASTINE HYDROCHLORIDE
     Indication: PRURITUS
     Route: 048
     Dates: start: 20131018, end: 20140107
  13. HYALEIN [Concomitant]
     Active Substance: HYALURONATE SODIUM
     Indication: DRY EYE
     Route: 047
     Dates: start: 20131217, end: 20140131
  14. MINOMYCIN [Concomitant]
     Active Substance: MINOCYCLINE HYDROCHLORIDE
     Indication: DERMATITIS ACNEIFORM
     Route: 048
     Dates: start: 20131227, end: 20140107
  15. HACHIAZULE                         /00317302/ [Concomitant]
     Indication: STOMATITIS
     Dosage: PROPER QUANTITY, TID
     Route: 049
     Dates: start: 20131217, end: 20140107
  16. BIOFERMIN R [Concomitant]
     Active Substance: DIETARY SUPPLEMENT\PROBIOTICS
     Indication: DIARRHOEA
     Route: 048
     Dates: start: 20131020, end: 20140108
  17. BESOFTEN [Concomitant]
     Active Substance: PENTOSAN POLYSULFATE SODIUM
     Indication: DRY SKIN
     Dosage: PROPER QUANTITY, TID
     Route: 061
     Dates: start: 20131015
  18. ALMETA [Concomitant]
     Active Substance: ALCLOMETASONE DIPROPIONATE
     Indication: DERMATITIS ACNEIFORM
     Dosage: PROPER QUANTITY, BID
     Route: 061
     Dates: start: 20131016, end: 20140107
  19. EPINASTINE HYDROCHLORIDE. [Concomitant]
     Active Substance: EPINASTINE HYDROCHLORIDE
     Route: 048
     Dates: start: 20140112, end: 20140113
  20. EPINASTINE HYDROCHLORIDE. [Concomitant]
     Active Substance: EPINASTINE HYDROCHLORIDE
     Route: 048
     Dates: start: 20140115, end: 20140120
  21. ANTEBATE [Concomitant]
     Active Substance: BETAMETHASONE DIPROPIONATE
     Indication: DRY SKIN
     Route: 061
     Dates: start: 20131016, end: 20131227

REACTIONS (3)
  - Dehydration [Recovered/Resolved]
  - Malaise [Recovered/Resolved]
  - Decreased appetite [Recovered/Resolved]

NARRATIVE: CASE EVENT DATE: 20131105
